FAERS Safety Report 9940505 (Version 1)
Quarter: 2014Q1

REPORT INFORMATION
  Report Type: Spontaneous
  Country: US (occurrence: US)
  Receive Date: 20140303
  Receipt Date: 20140303
  Transmission Date: 20141002
  Serious: Yes (Other)
  Sender: FDA-Public Use
  Company Number: US-PFIZER INC-2014056901

PATIENT
  Age: 57 Year
  Sex: Female
  Weight: 96.15 kg

DRUGS (4)
  1. LYRICA [Suspect]
     Indication: FIBROMYALGIA
     Dosage: 150 MG, EVERY 6 HRS
  2. LYRICA [Suspect]
     Indication: PAIN
  3. NUCYNTA ER [Concomitant]
     Indication: PAIN
     Dosage: 150 MG, 2X/DAY
  4. TOPAMAX [Concomitant]
     Indication: PAIN
     Dosage: 100 MG, 2X/DAY

REACTIONS (2)
  - Road traffic accident [Unknown]
  - Injury [Recovered/Resolved]
